FAERS Safety Report 25586747 (Version 1)
Quarter: 2025Q3

REPORT INFORMATION
  Report Type: Spontaneous
  Country: US (occurrence: None)
  Receive Date: 20250720
  Receipt Date: 20250720
  Transmission Date: 20251021
  Serious: Yes (Other)
  Sender: FDA-CTU
  Company Number: None

PATIENT
  Age: 57 Year
  Sex: Female

DRUGS (11)
  1. XCOPRI [Suspect]
     Active Substance: CENOBAMATE
     Indication: Seizure
     Dosage: 1 TABLET DAILY ORAL
     Route: 048
  2. VIMPAT [Concomitant]
     Active Substance: LACOSAMIDE
  3. KEPPRA [Concomitant]
     Active Substance: LEVETIRACETAM
  4. QUILPTA [Concomitant]
  5. DIAZEPAM [Concomitant]
     Active Substance: DIAZEPAM
  6. NURTEC ODT [Concomitant]
     Active Substance: RIMEGEPANT SULFATE
  7. MAGNESIUM [Concomitant]
     Active Substance: MAGNESIUM
  8. VITAMINS [Concomitant]
     Active Substance: VITAMINS
  9. STOOL [Concomitant]
  10. SOFTNER [Concomitant]
  11. ASPIRIN [Concomitant]
     Active Substance: ASPIRIN

REACTIONS (8)
  - Syncope [None]
  - Seizure [None]
  - Dizziness [None]
  - Headache [None]
  - Nausea [None]
  - Vomiting [None]
  - Drug interaction [None]
  - Product communication issue [None]

NARRATIVE: CASE EVENT DATE: 20250718
